FAERS Safety Report 7263354-7 (Version None)
Quarter: 2011Q1

REPORT INFORMATION
  Report Type: 
  Country: None (occurrence: None)
  Receive Date: 20110130
  Receipt Date: 20101105
  Transmission Date: 20110831
  Serious: No
  Sender: FDA-Public Use
  Company Number: US-ABBOTT-10P-163-0683722-00

PATIENT
  Age: 57 Year
  Sex: Female

DRUGS (11)
  1. HUMIRA [Suspect]
  2. CO Q-10 [Concomitant]
     Indication: PRODUCT USED FOR UNKNOWN INDICATION
  3. DAPZONE ANTIBIOTIC FOR LEPERS [Concomitant]
     Indication: PYODERMA GANGRENOSUM
  4. VITAMINS WITH MINERALS [Concomitant]
     Indication: PRODUCT USED FOR UNKNOWN INDICATION
  5. OXYCODONE [Concomitant]
     Indication: PAIN
  6. ACYCLOVIR [Concomitant]
     Indication: PYODERMA GANGRENOSUM
  7. PRAVASTATIN [Concomitant]
     Indication: BLOOD CHOLESTEROL
  8. FISH OIL [Concomitant]
     Indication: PRODUCT USED FOR UNKNOWN INDICATION
  9. CLONAZEPAM [Concomitant]
     Indication: ANXIETY
  10. HUMIRA [Suspect]
     Indication: PYODERMA GANGRENOSUM
     Dates: start: 20100616, end: 20101009
  11. CLONAZEPAM [Concomitant]
     Indication: DEPRESSION

REACTIONS (5)
  - DRUG DOSE OMISSION [None]
  - INJECTION SITE PAIN [None]
  - BLOOD GLUCOSE ABNORMAL [None]
  - SKIN LESION [None]
  - WOUND INFECTION [None]
